FAERS Safety Report 7091679-7 (Version None)
Quarter: 2010Q4

REPORT INFORMATION
  Report Type: 
  Country: None (occurrence: None)
  Receive Date: 20101109
  Receipt Date: 20090727
  Transmission Date: 20110411
  Serious: No
  Sender: FDA-Public Use
  Company Number: US-KINGPHARMUSA00001-K200900888

PATIENT
  Age: 62 Year
  Sex: Female
  Weight: 78.005 kg

DRUGS (9)
  1. FLECTOR [Suspect]
     Indication: SCIATICA
     Dosage: 1 PATCH, BID
     Route: 061
     Dates: start: 20090713, end: 20090723
  2. TOPROL-XL [Concomitant]
     Indication: HYPERTENSION
     Dosage: 100 MG, QD
  3. VASERETIC [Concomitant]
     Indication: HYPERTENSION
     Dosage: 10/25
  4. K-TAB [Concomitant]
     Dosage: UNK
  5. ESTRACE [Concomitant]
     Dosage: 1 MG, QD
  6. SYMAX [Concomitant]
     Indication: DIVERTICULUM
     Dosage: UNK
  7. PRILOSEC [Concomitant]
     Dosage: 20 MG, QD
  8. KLONOPIN [Concomitant]
     Indication: SCIATICA
     Dosage: UNK
  9. HYDROCODONE [Concomitant]
     Indication: SCIATICA
     Dosage: UNK

REACTIONS (4)
  - ABDOMINAL PAIN UPPER [None]
  - CHEST PAIN [None]
  - MUCOUS STOOLS [None]
  - NAUSEA [None]
